FAERS Safety Report 21889657 (Version 1)
Quarter: 2023Q1

REPORT INFORMATION
  Report Type: Report from Study
  Country: US (occurrence: US)
  Receive Date: 20230120
  Receipt Date: 20230120
  Transmission Date: 20230418
  Serious: Yes (Other)
  Sender: FDA-Public Use
  Company Number: US-ABBVIE-4274625

PATIENT
  Age: 54 Year
  Sex: Female

DRUGS (2)
  1. HUMIRA [Suspect]
     Active Substance: ADALIMUMAB
     Indication: Rheumatoid arthritis
     Dosage: CF
     Route: 058
     Dates: start: 20200807, end: 20201030
  2. HUMIRA [Suspect]
     Active Substance: ADALIMUMAB
     Dosage: CITRATE FREE
     Route: 058
     Dates: end: 202211

REACTIONS (9)
  - Hip arthroplasty [Unknown]
  - Hip arthroplasty [Unknown]
  - Foot operation [Unknown]
  - COVID-19 pneumonia [Recovering/Resolving]
  - Pulmonary thrombosis [Unknown]
  - Asthenia [Unknown]
  - Gait inability [Unknown]
  - Pulmonary artery aneurysm [Unknown]
  - Illness [Unknown]

NARRATIVE: CASE EVENT DATE: 20211101
